FAERS Safety Report 6696966-X (Version None)
Quarter: 2010Q2

REPORT INFORMATION
  Report Type: 
  Country: None (occurrence: None)
  Receive Date: 20100426
  Receipt Date: 20100421
  Transmission Date: 20101027
  Serious: Yes (Death)
  Sender: FDA-Public Use
  Company Number: PHHY2010US25142

PATIENT
  Sex: Male

DRUGS (2)
  1. GLEEVEC [Suspect]
     Dosage: 600 MG DAILY
     Route: 048
     Dates: start: 20091018
  2. HYDROCHLOROTHIAZIDE [Concomitant]

REACTIONS (1)
  - ARRHYTHMIA [None]
